FAERS Safety Report 6519984-0 (Version None)
Quarter: 2009Q4

REPORT INFORMATION
  Report Type: 
  Country: None (occurrence: None)
  Receive Date: 20091229
  Receipt Date: 20091217
  Transmission Date: 20100525
  Serious: No
  Sender: FDA-Public Use
  Company Number: US-JNJFOC-20091206223

PATIENT
  Sex: Male
  Weight: 80.74 kg

DRUGS (4)
  1. DURAGESIC-100 [Suspect]
     Indication: SCIATICA
     Route: 062
  2. NEURONTIN [Concomitant]
     Indication: SCIATICA
     Route: 048
  3. CELEBREX [Concomitant]
     Indication: SCIATICA
     Route: 048
  4. LORTAB [Concomitant]
     Indication: PAIN
     Route: 048

REACTIONS (4)
  - DRUG DOSE OMISSION [None]
  - DRUG EFFECT DECREASED [None]
  - FORMICATION [None]
  - WITHDRAWAL SYNDROME [None]
